FAERS Safety Report 19699415 (Version 3)
Quarter: 2021Q4

REPORT INFORMATION
  Report Type: Spontaneous
  Country: GB (occurrence: GB)
  Receive Date: 20210813
  Receipt Date: 20211207
  Transmission Date: 20220303
  Serious: Yes (Other)
  Sender: FDA-Public Use
  Company Number: GB-PFIZER INC-202100985485

PATIENT
  Age: 8 Decade
  Sex: Male

DRUGS (3)
  1. TOBRAMYCIN [Suspect]
     Active Substance: TOBRAMYCIN
     Indication: Mycobacterium chelonae infection
     Dosage: UNK
     Route: 042
  2. CLARITHROMYCIN [Suspect]
     Active Substance: CLARITHROMYCIN
     Indication: Mycobacterium chelonae infection
     Dosage: UNK
     Route: 048
  3. TEDIZOLID [Suspect]
     Active Substance: TEDIZOLID
     Indication: Mycobacterium chelonae infection
     Dosage: UNK

REACTIONS (4)
  - Deafness neurosensory [Unknown]
  - Peroneal nerve palsy [Unknown]
  - Axonal neuropathy [Unknown]
  - Neuropathy peripheral [Unknown]
